FAERS Safety Report 25105034 (Version 1)
Quarter: 2025Q1

REPORT INFORMATION
  Report Type: Spontaneous
  Country: CA (occurrence: CA)
  Receive Date: 20250321
  Receipt Date: 20250321
  Transmission Date: 20250409
  Serious: Yes (Other)
  Sender: COVIS PHARMA GMBH
  Company Number: CA-AMAGP-2025COV00321

PATIENT
  Age: 73 Year
  Sex: Female

DRUGS (9)
  1. OMNARIS [Suspect]
     Active Substance: CICLESONIDE
     Route: 045
  2. MICARDIS [Suspect]
     Active Substance: TELMISARTAN
  3. AMLODIPINE [Suspect]
     Active Substance: AMLODIPINE BESYLATE
  4. GABAPENTIN [Suspect]
     Active Substance: GABAPENTIN
  5. GLYCOPYRROLATE [Suspect]
     Active Substance: GLYCOPYRROLATE
  6. LOPERAMIDE [Suspect]
     Active Substance: LOPERAMIDE
  7. PREDNISONE [Suspect]
     Active Substance: PREDNISONE
  8. ALBUTEROL SULFATE [Suspect]
     Active Substance: ALBUTEROL SULFATE
  9. CYANOCOBALAMIN [Concomitant]
     Active Substance: CYANOCOBALAMIN

REACTIONS (6)
  - Arthritis [Unknown]
  - Asthma [Unknown]
  - Depression [Unknown]
  - Dyspnoea [Unknown]
  - Glaucoma [Unknown]
  - Sleep apnoea syndrome [Unknown]
